FAERS Safety Report 9079780 (Version 1)
Quarter: 2013Q1

REPORT INFORMATION
  Report Type: Report from Study
  Country: US (occurrence: US)
  Receive Date: 20130130
  Receipt Date: 20130130
  Transmission Date: 20140127
  Serious: No
  Sender: FDA-Public Use
  Company Number: US-ABBOTT-12P-163-0964936-00

PATIENT
  Age: 74 Year
  Sex: Female

DRUGS (12)
  1. HUMIRA 40 MG/0.8 ML PEN [Suspect]
     Indication: CROHN^S DISEASE
     Dates: start: 20120509, end: 20120718
  2. HUMIRA 40 MG/0.8 ML PEN [Suspect]
     Dates: end: 20120801
  3. BYSTOLIC [Concomitant]
     Indication: HYPERTENSION
     Dosage: 20MG DAILY
     Route: 048
  4. LEVOXYL [Concomitant]
     Indication: HYPOTHYROIDISM
  5. PREMARIN [Concomitant]
     Indication: HORMONE REPLACEMENT THERAPY
  6. PRILOSEC [Concomitant]
     Indication: GASTROOESOPHAGEAL REFLUX DISEASE
     Route: 048
  7. WELCHOL [Concomitant]
     Indication: BLOOD CHOLESTEROL INCREASED
  8. EYE CAP SUPPLEMENTS [Concomitant]
     Indication: VITAMIN SUPPLEMENTATION
  9. PREDNISONE [Concomitant]
     Indication: PRODUCT USED FOR UNKNOWN INDICATION
     Dosage: 8MG DAILY
  10. PREDNISONE [Concomitant]
  11. CALCIUM 600+VITAMIN D3 [Concomitant]
     Indication: PRODUCT USED FOR UNKNOWN INDICATION
  12. LOSARTAN POTASSIUM [Concomitant]
     Dosage: TWO ONCE A DAY

REACTIONS (6)
  - Drug dose omission [Unknown]
  - Frequent bowel movements [Unknown]
  - Pyrexia [Recovered/Resolved]
  - Blood pressure increased [Unknown]
  - Rash [Not Recovered/Not Resolved]
  - Urinary tract infection [Unknown]
